FAERS Safety Report 9312512 (Version 1)
Quarter: 2013Q2

REPORT INFORMATION
  Report Type: Spontaneous
  Country: US (occurrence: US)
  Receive Date: 20130528
  Receipt Date: 20130528
  Transmission Date: 20140414
  Serious: Yes (Other)
  Sender: FDA-Public Use
  Company Number: US-AMGEN-USASP2013037104

PATIENT
  Age: 52 Year
  Sex: Male

DRUGS (8)
  1. ENBREL [Suspect]
     Indication: PRODUCT USED FOR UNKNOWN INDICATION
     Dosage: 50 MG, QWK
     Route: 058
  2. ASA [Concomitant]
     Dosage: LOW STRENGTH 81 MG ENTERIC COATED UNK
  3. METHOTREXATE [Concomitant]
     Dosage: 2.5 MG, UNK
  4. FOLIC ACID [Concomitant]
     Dosage: UNK
  5. PREDNISONE [Concomitant]
     Dosage: 1 MG, UNK
  6. CARVEDILOL [Concomitant]
     Dosage: 6.25 MG, UNK
  7. MULTIVITAMINS, PLAIN [Concomitant]
     Dosage: UNK
  8. FLOMAX                             /00889901/ [Concomitant]
     Dosage: 0.4 MG, UNK

REACTIONS (3)
  - Urinary tract infection [Unknown]
  - Nephrolithiasis [Unknown]
  - Urinary retention [Unknown]
